FAERS Safety Report 20050274 (Version 2)
Quarter: 2021Q4

REPORT INFORMATION
  Report Type: Spontaneous
  Country: FR (occurrence: FR)
  Receive Date: 20211109
  Receipt Date: 20211110
  Transmission Date: 20220304
  Serious: Yes (Death, Hospitalization, Other)
  Sender: FDA-Public Use
  Company Number: None

PATIENT
  Age: 77 Year
  Sex: Male
  Weight: 68 kg

DRUGS (16)
  1. COMIRNATY [Suspect]
     Active Substance: TOZINAMERAN
     Indication: COVID-19 immunisation
     Dosage: DOSE 1, SINGLE
     Route: 030
     Dates: start: 20210913, end: 20210913
  2. METHOTREXATE SODIUM [Suspect]
     Active Substance: METHOTREXATE SODIUM
     Indication: Spondylitis
     Dosage: 5 MG, WEEKLY
     Route: 048
     Dates: start: 202009, end: 20210913
  3. METHOTREXATE SODIUM [Suspect]
     Active Substance: METHOTREXATE SODIUM
     Dosage: 5 MG, WEEKLY
     Route: 048
     Dates: start: 20210913
  4. RIFAMPIN [Suspect]
     Active Substance: RIFAMPIN
     Indication: Tuberculosis
     Route: 048
     Dates: start: 20210911
  5. LEVOFLOXACIN [Suspect]
     Active Substance: LEVOFLOXACIN
     Indication: Tuberculosis
     Route: 058
     Dates: start: 20210912
  6. LEVOFLOXACIN [Suspect]
     Active Substance: LEVOFLOXACIN
     Indication: Thrombosis prophylaxis
  7. ETHAMBUTOL HYDROCHLORIDE [Suspect]
     Active Substance: ETHAMBUTOL HYDROCHLORIDE
     Indication: Tuberculosis
     Route: 048
     Dates: start: 20210911
  8. SIMPONI [Suspect]
     Active Substance: GOLIMUMAB
     Indication: Spondylitis
     Dosage: UNK, MONTHLY
     Route: 058
     Dates: start: 202009
  9. PYRAZINAMIDE [Suspect]
     Active Substance: PYRAZINAMIDE
     Indication: Tuberculosis
     Route: 048
     Dates: start: 20210911
  10. RIMIFON [Suspect]
     Active Substance: ISONIAZID
     Indication: Tuberculosis
     Dosage: 300 MG
     Route: 048
     Dates: start: 20210911
  11. FOLIC ACID [Concomitant]
     Active Substance: FOLIC ACID
     Dosage: 5 MG, WEEKLY
     Route: 065
     Dates: start: 2020
  12. POTASSIUM CHLORIDE [Concomitant]
     Active Substance: POTASSIUM CHLORIDE
     Dosage: UNK
     Route: 065
  13. PYRIDOXINE [Concomitant]
     Active Substance: PYRIDOXINE
     Route: 065
  14. BISOPROLOL [Concomitant]
     Active Substance: BISOPROLOL
     Dosage: UNK
     Route: 065
  15. ALFUZOSIN [Concomitant]
     Active Substance: ALFUZOSIN
     Dosage: UNK
     Route: 065
  16. FILGRASTIM [Concomitant]
     Active Substance: FILGRASTIM
     Dosage: 30 MIU
     Dates: start: 20210911, end: 20210913

REACTIONS (4)
  - Rectal haemorrhage [Fatal]
  - Gastrointestinal haemorrhage [Fatal]
  - Thrombocytopenia [Unknown]
  - Anaemia [Unknown]

NARRATIVE: CASE EVENT DATE: 20210914
